FAERS Safety Report 22247611 (Version 1)
Quarter: 2023Q2

REPORT INFORMATION
  Report Type: Spontaneous
  Country: US (occurrence: US)
  Receive Date: 20230425
  Receipt Date: 20230425
  Transmission Date: 20230722
  Serious: No
  Sender: FDA-Public Use
  Company Number: US-TOPROL-2022000132

PATIENT
  Sex: Female

DRUGS (2)
  1. TOPROL XL [Suspect]
     Active Substance: METOPROLOL SUCCINATE
     Indication: Product used for unknown indication
     Dosage: PATIENT STATED THAT THEY TAKE 4 PILLS A DAY, 2 IN THE MORNING AND TWO AT NIGHT.
     Route: 048
     Dates: start: 2007
  2. METOPROLOL SUCCINATE [Suspect]
     Active Substance: METOPROLOL SUCCINATE
     Indication: Product used for unknown indication
     Dosage: PATIENT STATED THAT THEY TAKE 4 PILLS A DAY, 2 IN THE MORNING AND TWO AT NIGHT.
     Route: 048
     Dates: start: 2007

REACTIONS (3)
  - Blood pressure increased [Unknown]
  - Alopecia [Unknown]
  - Product use issue [Unknown]
